FAERS Safety Report 9470227 (Version 1)
Quarter: 2013Q3

REPORT INFORMATION
  Report Type: Spontaneous
  Country: GB (occurrence: GB)
  Receive Date: 20130822
  Receipt Date: 20130822
  Transmission Date: 20140515
  Serious: Yes (Other)
  Sender: FDA-Public Use
  Company Number: GB-GALDERMA-GB13002644

PATIENT
  Age: 91 Year
  Sex: Female

DRUGS (12)
  1. DOXYCYCLINE [Suspect]
     Route: 048
     Dates: start: 20130218
  2. ADCAL [Concomitant]
     Dates: start: 20121214, end: 20130111
  3. AMLODIPINE [Concomitant]
     Dates: start: 20121214, end: 20130111
  4. ASPIRIN [Concomitant]
     Dates: start: 20121214
  5. BISOPROLOL [Concomitant]
     Dates: start: 20121214
  6. FUROSEMIDE [Concomitant]
     Dates: start: 20121220
  7. ISOSORBIDE MONONITRATE [Concomitant]
     Dates: start: 20121220
  8. LEVOTHYROXINE [Concomitant]
     Dates: start: 20121220
  9. PREDNISOLONE [Concomitant]
     Dates: start: 20130218, end: 20130223
  10. SALBUTAMOL [Concomitant]
     Dates: start: 20130218
  11. SERTRALINE [Concomitant]
     Dates: start: 20130308
  12. TINZAPARIN [Concomitant]
     Dates: start: 20130207, end: 20130214

REACTIONS (1)
  - Rash maculo-papular [Unknown]
